FAERS Safety Report 8512272-2 (Version None)
Quarter: 2012Q3

REPORT INFORMATION
  Report Type: 
  Country: None (occurrence: None)
  Receive Date: 20120716
  Receipt Date: 20120711
  Transmission Date: 20120928
  Serious: Yes (Death, Congenital Anomaly)
  Sender: FDA-Public Use
  Company Number: GB-ASTRAZENECA-2012SE47539

PATIENT

DRUGS (2)
  1. QUETIAPINE [Suspect]
     Route: 064
     Dates: start: 20111022
  2. QUETIAPINE [Suspect]
     Dosage: THE MOTHER TOOK AN OVERDOSE OF 9 X 200 MG TABLETS POSSIBLY DURING EARLY PREGNANCY
     Route: 064

REACTIONS (2)
  - CONGENITAL ANOMALY [None]
  - FOETAL DEATH [None]
